FAERS Safety Report 7121094-9 (Version None)
Quarter: 2010Q4

REPORT INFORMATION
  Report Type: 
  Country: None (occurrence: None)
  Receive Date: 20101124
  Receipt Date: 20100331
  Transmission Date: 20110411
  Serious: No
  Sender: FDA-Public Use
  Company Number: US-PFIZER INC-2010042124

PATIENT
  Sex: Male

DRUGS (10)
  1. TIKOSYN [Suspect]
     Dosage: 0.25 MG, 2X/DAY
     Route: 048
     Dates: start: 20090801
  2. XANAX [Suspect]
     Indication: SLEEP DISORDER
     Dosage: 0.125 MG, 1X/DAY
     Route: 048
  3. LANTUS [Concomitant]
     Indication: DIABETES MELLITUS
     Dosage: 10 IU, 1X/DAY
  4. GLUCOVANCE [Concomitant]
     Indication: DIABETES MELLITUS
     Dosage: 1.25/250 MG, 2X/DAY
     Route: 048
  5. LEVOXYL [Concomitant]
     Indication: HYPOTHYROIDISM
     Dosage: 25 UG, 1X/DAY
     Route: 048
  6. ATROVENT [Concomitant]
     Indication: SEASONAL ALLERGY
     Dosage: UNK
  7. OLOPATADINE HYDROCHLORIDE [Concomitant]
     Indication: SEASONAL ALLERGY
     Dosage: UNK
  8. UROXATRAL [Concomitant]
     Indication: BENIGN PROSTATIC HYPERPLASIA
     Dosage: 10 MG, 1X/DAY
     Route: 048
  9. LIPITOR [Concomitant]
     Indication: BLOOD CHOLESTEROL INCREASED
     Dosage: 10 MG, UNK
     Route: 048
  10. WARFARIN SODIUM [Concomitant]
     Indication: ANTICOAGULANT THERAPY
     Dosage: 5 MG, UNK
     Route: 048

REACTIONS (1)
  - ALOPECIA [None]
